FAERS Safety Report 25789894 (Version 2)
Quarter: 2025Q3

REPORT INFORMATION
  Report Type: Spontaneous
  Country: KR (occurrence: KR)
  Receive Date: 20250911
  Receipt Date: 20250917
  Transmission Date: 20251021
  Serious: Yes (Disabling, Other)
  Sender: GILEAD
  Company Number: KR-GILEAD-2025-0727839

PATIENT
  Sex: Female

DRUGS (1)
  1. TRODELVY [Suspect]
     Active Substance: SACITUZUMAB GOVITECAN-HZIY
     Indication: Product used for unknown indication
     Route: 065
     Dates: start: 202505, end: 202508

REACTIONS (1)
  - Disease progression [Unknown]

NARRATIVE: CASE EVENT DATE: 20250812
